FAERS Safety Report 10588158 (Version 5)
Quarter: 2017Q4

REPORT INFORMATION
  Report Type: Report from Study
  Country: AT (occurrence: AT)
  Receive Date: 20141117
  Receipt Date: 20171207
  Transmission Date: 20180320
  Serious: Yes (Death)
  Sender: FDA-Public Use
  Company Number: AT-JNJFOC-20141106377

PATIENT
  Age: 77 Year
  Sex: Male
  Weight: 67 kg

DRUGS (6)
  1. NICORANDIL [Concomitant]
     Active Substance: NICORANDIL
     Indication: ACUTE CORONARY SYNDROME
     Dates: start: 20140911, end: 20141106
  2. TRIAZOLAM. [Concomitant]
     Active Substance: TRIAZOLAM
     Indication: INSOMNIA
     Route: 048
     Dates: end: 20141106
  3. IBRUTINIB [Suspect]
     Active Substance: IBRUTINIB
     Indication: MANTLE CELL LYMPHOMA
     Route: 048
     Dates: start: 20140912
  4. RIVAROXABAN [Concomitant]
     Active Substance: RIVAROXABAN
     Indication: ANTICOAGULANT THERAPY
     Dates: start: 20140829, end: 20141106
  5. ALLOPURINOL. [Concomitant]
     Active Substance: ALLOPURINOL
     Indication: HYPERURICAEMIA
     Route: 048
     Dates: start: 20141023, end: 20141106
  6. PANTOPRAZOLE [Concomitant]
     Active Substance: PANTOPRAZOLE
     Indication: PROPHYLAXIS
     Route: 048
     Dates: end: 20141107

REACTIONS (3)
  - Cardiac disorder [Not Recovered/Not Resolved]
  - White blood cell count increased [Fatal]
  - Pneumonia [Fatal]

NARRATIVE: CASE EVENT DATE: 20141030
